FAERS Safety Report 18502697 (Version 1)
Quarter: 2020Q4

REPORT INFORMATION
  Report Type: Report from Study
  Country: CA (occurrence: CA)
  Receive Date: 20201113
  Receipt Date: 20201113
  Transmission Date: 20210114
  Serious: Yes (Other)
  Sender: FDA-Public Use
  Company Number: CA-JNJFOC-20201117177

PATIENT
  Age: 19 Year
  Sex: Female

DRUGS (1)
  1. REMICADE [Suspect]
     Active Substance: INFLIXIMAB
     Indication: CROHN^S DISEASE
     Route: 042
     Dates: start: 20201107

REACTIONS (12)
  - Heart rate increased [Unknown]
  - Hyperhidrosis [Unknown]
  - Feeling hot [Unknown]
  - Nervousness [Unknown]
  - Hypersensitivity [Unknown]
  - Flushing [Unknown]
  - Nausea [Unknown]
  - Infusion related reaction [Unknown]
  - Dyspnoea [Unknown]
  - Chest discomfort [Not Recovered/Not Resolved]
  - Blood pressure increased [Unknown]
  - Dizziness [Unknown]
